FAERS Safety Report 9685162 (Version 1)
Quarter: 2013Q4

REPORT INFORMATION
  Report Type: Spontaneous
  Country: US (occurrence: None)
  Receive Date: 20131111
  Receipt Date: 20131111
  Transmission Date: 20140711
  Serious: Yes (Disabling)
  Sender: FDA-Public Use
  Company Number: None

PATIENT
  Age: 55 Year
  Sex: Female
  Weight: 54.43 kg

DRUGS (1)
  1. CLINDAMYCIN HCL [Suspect]
     Indication: SINUSITIS
     Dosage: 2 PILLS
     Route: 048
     Dates: start: 20131107, end: 20131107

REACTIONS (4)
  - Vomiting [None]
  - Nausea [None]
  - Decreased appetite [None]
  - Lethargy [None]
